FAERS Safety Report 8159646-X (Version None)
Quarter: 2012Q1

REPORT INFORMATION
  Report Type: 
  Country: None (occurrence: None)
  Receive Date: 20120223
  Receipt Date: 20120210
  Transmission Date: 20120608
  Serious: Yes (Hospitalization)
  Sender: FDA-Public Use
  Company Number: JP-ROCHE-767544

PATIENT
  Sex: Female

DRUGS (29)
  1. ACTEMRA [Suspect]
     Indication: RHEUMATOID ARTHRITIS
     Route: 041
     Dates: start: 20090629, end: 20090629
  2. ACTEMRA [Suspect]
     Route: 041
     Dates: start: 20090727, end: 20090727
  3. ACTEMRA [Suspect]
     Route: 041
     Dates: start: 20100309, end: 20100309
  4. PREDNISOLONE AND PREDNISOLONE ACETATE AND PREDNISOLONE SODIUM SUCCINAT [Suspect]
     Route: 042
     Dates: start: 20090824, end: 20090824
  5. NATEGLINIDE [Concomitant]
     Dosage: DOSE FORM: PERORAL AGENT
     Route: 048
  6. OSTELUC [Concomitant]
     Dosage: DOSE FORM: PERORAL AGENT
     Route: 048
  7. ACTEMRA [Suspect]
     Route: 041
     Dates: start: 20091019, end: 20091019
  8. ACTEMRA [Suspect]
     Route: 041
     Dates: start: 20100209, end: 20100209
  9. PREDNISOLONE AND PREDNISOLONE ACETATE AND PREDNISOLONE SODIUM SUCCINAT [Suspect]
     Route: 042
     Dates: start: 20091217, end: 20091217
  10. PREDNISOLONE [Concomitant]
     Dosage: DOSE FORM: PERORAL AGENT
     Route: 048
  11. MUCOSTA [Concomitant]
     Dosage: DOSE FORM: PERORAL AGENT
     Route: 048
  12. ACTEMRA [Suspect]
     Route: 041
     Dates: start: 20090824, end: 20090824
  13. ACTEMRA [Suspect]
     Route: 041
     Dates: start: 20100408, end: 20100408
  14. PREDNISOLONE AND PREDNISOLONE ACETATE AND PREDNISOLONE SODIUM SUCCINAT [Suspect]
     Route: 042
     Dates: start: 20091019, end: 20091019
  15. ALENDRONATE SODIUM [Concomitant]
     Dosage: FOSAMAC (ALENDRONATE SODIUM HYDRATE)
     Route: 048
  16. ACTEMRA [Suspect]
     Route: 041
     Dates: start: 20091117, end: 20091117
  17. ACTEMRA [Suspect]
     Route: 041
     Dates: start: 20100508, end: 20100508
  18. ACTEMRA [Suspect]
     Route: 041
     Dates: start: 20100605, end: 20100605
  19. PREDNISOLONE AND PREDNISOLONE ACETATE AND PREDNISOLONE SODIUM SUCCINAT [Suspect]
     Route: 042
     Dates: start: 20090918, end: 20090918
  20. PREDNISOLONE [Concomitant]
     Route: 048
  21. FOLIC ACID [Concomitant]
     Dosage: DOSE FORM: PERORAL AGENT
     Route: 048
  22. ACTEMRA [Suspect]
     Route: 041
     Dates: start: 20090918, end: 20090918
  23. ACTEMRA [Suspect]
     Route: 041
     Dates: start: 20100116, end: 20100116
  24. PREDNISOLONE AND PREDNISOLONE ACETATE AND PREDNISOLONE SODIUM SUCCINAT [Suspect]
     Route: 042
     Dates: start: 20091117, end: 20091117
  25. RHEUMATREX [Concomitant]
     Indication: RHEUMATOID ARTHRITIS
     Dosage: DOSAGE IS UNCERTAIN
     Route: 048
  26. ACTEMRA [Suspect]
     Route: 041
     Dates: start: 20091217, end: 20091217
  27. ACTEMRA [Suspect]
     Route: 041
     Dates: start: 20100701, end: 20110218
  28. PREDNISOLONE AND PREDNISOLONE ACETATE AND PREDNISOLONE SODIUM SUCCINAT [Suspect]
     Indication: PROPHYLAXIS
     Dosage: PREDNISOLONE SODIUM SUCCINATE
     Route: 042
     Dates: start: 20090629, end: 20090629
  29. PREDNISOLONE AND PREDNISOLONE ACETATE AND PREDNISOLONE SODIUM SUCCINAT [Suspect]
     Route: 042
     Dates: start: 20090727, end: 20090727

REACTIONS (2)
  - DIVERTICULITIS INTESTINAL HAEMORRHAGIC [None]
  - HYPERLIPIDAEMIA [None]
